FAERS Safety Report 7684608 (Version 2)
Quarter: 2012Q4

REPORT INFORMATION
  Report Type: Report from Study
  Country: BE (occurrence: BE)
  Receive Date: 20101129
  Receipt Date: 20121022
  Transmission Date: 20130627
  Serious: Yes (Death)
  Sender: FDA-Public Use
  Company Number: PHHY2010BE79995

PATIENT
  Age: 74 Year
  Sex: Female

DRUGS (3)
  1. EXELON [Suspect]
     Indication: DEMENTIA ALZHEIMER^S TYPE
     Dosage: 4.6 mg, Daily
     Route: 062
     Dates: start: 20100814, end: 20100818
  2. PROLOPA [Concomitant]
     Indication: PARKINSON^S DISEASE
     Dosage: 4 x 1/2 tablets daily
  3. PERMAX [Concomitant]
     Indication: PARKINSON^S DISEASE
     Dosage: 1.5 mg, QD

REACTIONS (5)
  - Cardiac arrest [Fatal]
  - Disseminated intravascular coagulation [Fatal]
  - Septic shock [Fatal]
  - Renal failure [Fatal]
  - Dysphagia [Fatal]
